FAERS Safety Report 5591278-X (Version None)
Quarter: 2008Q1

REPORT INFORMATION
  Report Type: 
  Country: None (occurrence: None)
  Receive Date: 20080110
  Receipt Date: 20080110
  Transmission Date: 20080703
  Serious: Yes (Other)
  Sender: FDA-Public Use
  Company Number: None

PATIENT
  Age: 63 Year
  Sex: Female

DRUGS (4)
  1. FLUOXETINE [Suspect]
     Dates: start: 20071212, end: 20071231
  2. AVALIDE [Concomitant]
  3. PROTONIX [Concomitant]
  4. MIACALCIN [Concomitant]

REACTIONS (4)
  - DYSPHAGIA [None]
  - ERUCTATION [None]
  - FOREIGN BODY TRAUMA [None]
  - PHARMACEUTICAL PRODUCT COMPLAINT [None]
